FAERS Safety Report 7337883-1 (Version None)
Quarter: 2011Q1

REPORT INFORMATION
  Report Type: 
  Country: None (occurrence: None)
  Receive Date: 20110308
  Receipt Date: 20110301
  Transmission Date: 20110831
  Serious: Yes (Hospitalization)
  Sender: FDA-Public Use
  Company Number: PL-ROCHE-763232

PATIENT
  Age: 59 Year
  Sex: Male
  Weight: 82 kg

DRUGS (7)
  1. CYCLOSPORINE [Suspect]
     Dosage: DOSE REDUCED
     Route: 048
     Dates: start: 20110210
  2. PREDNISONE [Suspect]
     Route: 048
     Dates: start: 20091007
  3. MYCOPHENOLATE MOFETIL [Suspect]
     Route: 048
  4. CYCLOSPORINE [Suspect]
     Route: 048
     Dates: start: 20091007
  5. BISOPROLOL FUMARATE [Concomitant]
     Dates: start: 20081018
  6. BISEPTOL [Concomitant]
     Dates: start: 20091203, end: 20110209
  7. DOXAZOSIN [Concomitant]
     Dates: start: 20081208

REACTIONS (1)
  - TRANSPLANT REJECTION [None]
